FAERS Safety Report 19244755 (Version 1)
Quarter: 2021Q2

REPORT INFORMATION
  Report Type: Spontaneous
  Country: US (occurrence: US)
  Receive Date: 20210512
  Receipt Date: 20210512
  Transmission Date: 20210717
  Serious: Yes (Other)
  Sender: FDA-Public Use
  Company Number: US-ROCHE-2828522

PATIENT
  Sex: Male

DRUGS (1)
  1. ESBRIET [Suspect]
     Active Substance: PIRFENIDONE
     Indication: IDIOPATHIC PULMONARY FIBROSIS
     Route: 048
     Dates: start: 20201207

REACTIONS (5)
  - Diverticulitis [Unknown]
  - Gastric infection [Unknown]
  - Weight decreased [Unknown]
  - Pollakiuria [Unknown]
  - Cholelithiasis [Unknown]
